FAERS Safety Report 25245486 (Version 2)
Quarter: 2025Q2

REPORT INFORMATION
  Report Type: Report from Study
  Country: US (occurrence: US)
  Receive Date: 20250428
  Receipt Date: 20250618
  Transmission Date: 20250717
  Serious: No
  Sender: SUNOVION
  Company Number: US-SUMITOMO PHARMA SWITZERLAND GMBH-2025SPA004023

PATIENT

DRUGS (2)
  1. ORGOVYX [Suspect]
     Active Substance: RELUGOLIX
     Indication: Prostate cancer
     Dosage: 120 MG, QD...STARTED WITH BIOLOGICS
     Route: 048
     Dates: start: 20250306
  2. Clean [Concomitant]
     Indication: Skin disorder
     Route: 065

REACTIONS (7)
  - Skin irritation [Unknown]
  - Pruritus [Unknown]
  - Hypersensitivity [Unknown]
  - Constipation [Unknown]
  - Hot flush [Unknown]
  - Weight increased [Unknown]
  - Incorrect dose administered [Unknown]
